FAERS Safety Report 11214215 (Version 1)
Quarter: 2015Q2

REPORT INFORMATION
  Report Type: Spontaneous
  Country: US (occurrence: US)
  Receive Date: 20150623
  Receipt Date: 20150623
  Transmission Date: 20150821
  Serious: Yes (Hospitalization)
  Sender: FDA-Public Use
  Company Number: US-DENTSPLY-2015SCDP000066

PATIENT
  Age: 20 Year
  Sex: Male

DRUGS (13)
  1. MORPHINE [Concomitant]
     Active Substance: MORPHINE
     Indication: PRODUCT USED FOR UNKNOWN INDICATION
     Dosage: 10 MG, UNK
  2. METHYLPREDNISOLONE. [Concomitant]
     Active Substance: METHYLPREDNISOLONE
     Indication: PRODUCT USED FOR UNKNOWN INDICATION
     Dosage: 125 MG BEFORE INCISION AND REDOSED EVERY 6 HOURS FOR 24 HOURS
  3. PHENYLEPHRINE [Concomitant]
     Active Substance: PHENYLEPHRINE\PHENYLEPHRINE HYDROCHLORIDE
     Indication: PRODUCT USED FOR UNKNOWN INDICATION
     Dosage: UNK
  4. ESMOLOL [Concomitant]
     Active Substance: ESMOLOL HYDROCHLORIDE
     Indication: PROCEDURAL HYPOTENSION
     Dosage: 180 MG, UNK
  5. LIDOCAINE WITH ADRENALINE [Suspect]
     Active Substance: EPINEPHRINE\LIDOCAINE
     Indication: INFILTRATION ANAESTHESIA
     Dosage: UNK
     Route: 004
  6. THIOPENTAL [Concomitant]
     Active Substance: THIOPENTAL
     Indication: ANAESTHESIA
     Dosage: UNK
  7. MIDAZOLAM [Concomitant]
     Active Substance: MIDAZOLAM\MIDAZOLAM HYDROCHLORIDE
     Indication: PRODUCT USED FOR UNKNOWN INDICATION
     Dosage: 2 MG, UNK
  8. VECURONIUM [Concomitant]
     Active Substance: VECURONIUM BROMIDE
     Indication: PARALYSIS
     Dosage: UNK
  9. NITROUS OXIDE. [Concomitant]
     Active Substance: NITROUS OXIDE
     Indication: MAINTENANCE OF ANAESTHESIA
     Dosage: UNK
  10. FENTANYL. [Concomitant]
     Active Substance: FENTANYL
     Indication: PRODUCT USED FOR UNKNOWN INDICATION
     Dosage: 350 MICROGRAM, UNK
  11. ISOFLURANE. [Concomitant]
     Active Substance: ISOFLURANE
     Indication: MAINTENANCE OF ANAESTHESIA
     Dosage: UNK
  12. ONDANSETRON [Concomitant]
     Active Substance: ONDANSETRON
     Indication: PRODUCT USED FOR UNKNOWN INDICATION
     Dosage: 8 MG, UNK
  13. KETOROLAC [Concomitant]
     Active Substance: KETOROLAC\KETOROLAC TROMETHAMINE
     Indication: PRODUCT USED FOR UNKNOWN INDICATION
     Dosage: 30 MG, UNK

REACTIONS (2)
  - VIth nerve paralysis [Recovered/Resolved]
  - Mydriasis [Recovered/Resolved]
